FAERS Safety Report 14628416 (Version 2)
Quarter: 2018Q1

REPORT INFORMATION
  Report Type: Spontaneous
  Country: US (occurrence: US)
  Receive Date: 20180312
  Receipt Date: 20180327
  Transmission Date: 20180509
  Serious: Yes (Hospitalization, Other)
  Sender: FDA-Public Use
  Company Number: US-ABBVIE-18K-163-2281353-00

PATIENT
  Age: 42 Year
  Sex: Male
  Weight: 76.27 kg

DRUGS (7)
  1. SYNTHROID [Concomitant]
     Active Substance: LEVOTHYROXINE SODIUM
     Indication: HYPOPITUITARISM
  2. CALCIUM [Concomitant]
     Active Substance: CALCIUM
     Indication: MINERAL SUPPLEMENTATION
  3. TEGRETOL [Concomitant]
     Active Substance: CARBAMAZEPINE
     Indication: CONVULSION PROPHYLAXIS
  4. PREDNISONE. [Concomitant]
     Active Substance: PREDNISONE
     Indication: HYPOPITUITARISM
  5. ZONEGRAN [Concomitant]
     Active Substance: ZONISAMIDE
     Indication: CONVULSION PROPHYLAXIS
  6. ANDROGEL [Suspect]
     Active Substance: TESTOSTERONE
     Indication: BLOOD TESTOSTERONE DECREASED
     Dosage: 1-2 PUMPS DAILY
     Route: 061
     Dates: start: 2015, end: 201701
  7. VITAMIN D [Concomitant]
     Active Substance: CHOLECALCIFEROL
     Indication: VITAMIN SUPPLEMENTATION

REACTIONS (5)
  - Influenza [Recovered/Resolved]
  - Pneumonia [Recovered/Resolved]
  - Seizure [Recovering/Resolving]
  - Cerebrovascular accident [Recovering/Resolving]
  - Thrombosis [Recovered/Resolved]

NARRATIVE: CASE EVENT DATE: 2015
